FAERS Safety Report 7322818-8 (Version None)
Quarter: 2011Q1

REPORT INFORMATION
  Report Type: 
  Country: None (occurrence: None)
  Receive Date: 20110215
  Receipt Date: 20110204
  Transmission Date: 20110831
  Serious: Yes (Disabling, Other)
  Sender: FDA-Public Use
  Company Number: 822051

PATIENT
  Sex: Female

DRUGS (8)
  1. HEPARIN SODIUM [Suspect]
     Indication: PERIPHERAL ARTERIAL OCCLUSIVE DISEASE
     Dates: start: 20071001, end: 20071031
  2. HEPARIN SODIUM [Suspect]
     Indication: FEMORAL ARTERY OCCLUSION
     Dates: start: 20071001, end: 20071031
  3. HEPARIN SODIUM INJECTION [Suspect]
     Indication: FEMORAL ARTERY OCCLUSION
     Dates: start: 20071001, end: 20071031
  4. HEPARIN SODIUM INJECTION [Suspect]
     Indication: PERIPHERAL ARTERIAL OCCLUSIVE DISEASE
     Dates: start: 20071001, end: 20071031
  5. HEPARIN SODIUM [Suspect]
     Indication: FEMORAL ARTERY OCCLUSION
     Dates: start: 20071001, end: 20071031
  6. HEPARIN SODIUM [Suspect]
     Indication: PERIPHERAL ARTERIAL OCCLUSIVE DISEASE
     Dates: start: 20071001, end: 20071031
  7. HEPARIN SODIUM [Suspect]
     Indication: PERIPHERAL ARTERIAL OCCLUSIVE DISEASE
     Dates: start: 20071001, end: 20071031
  8. HEPARIN SODIUM [Suspect]
     Indication: FEMORAL ARTERY OCCLUSION
     Dates: start: 20071001, end: 20071031

REACTIONS (11)
  - HEPARIN-INDUCED THROMBOCYTOPENIA [None]
  - GRAFT THROMBOSIS [None]
  - MENTAL DISORDER [None]
  - PAIN [None]
  - MULTIPLE INJURIES [None]
  - CERVICAL VERTEBRAL FRACTURE [None]
  - NECROSIS [None]
  - SKULL FRACTURE [None]
  - CYANOSIS [None]
  - LEG AMPUTATION [None]
  - THROMBOSIS [None]
